FAERS Safety Report 17581534 (Version 1)
Quarter: 2020Q1

REPORT INFORMATION
  Report Type: Report from Study
  Country: IT (occurrence: IT)
  Receive Date: 20200325
  Receipt Date: 20200325
  Transmission Date: 20200409
  Serious: Yes (Hospitalization, Other)
  Sender: FDA-Public Use
  Company Number: IT-MYLANLABS-2020M1030753

PATIENT
  Age: 57 Year
  Sex: Male

DRUGS (4)
  1. QUETIAPINE. [Suspect]
     Active Substance: QUETIAPINE
     Dosage: 1000 MILLIGRAM, TOTAL
     Route: 048
     Dates: start: 20191025, end: 20191025
  2. PALIPERIDONE. [Suspect]
     Active Substance: PALIPERIDONE
     Indication: PRODUCT USED FOR UNKNOWN INDICATION
     Dosage: 48 MILLIGRAM, TOTAL
     Route: 048
     Dates: start: 20191025, end: 20191025
  3. CLOPIXOL                           /00876702/ [Concomitant]
     Active Substance: ZUCLOPENTHIXOL ACETATE
     Dosage: 200 MILLIGRAM
     Route: 030
  4. QUETIAPINE. [Suspect]
     Active Substance: QUETIAPINE
     Indication: PRODUCT USED FOR UNKNOWN INDICATION
     Dosage: 4000 MILLIGRAM, TOTAL
     Route: 048
     Dates: start: 20191025, end: 20191025

REACTIONS (5)
  - Drug abuse [Recovering/Resolving]
  - Slow speech [Recovering/Resolving]
  - Sopor [Recovering/Resolving]
  - Intentional self-injury [Unknown]
  - Intentional product misuse [Unknown]

NARRATIVE: CASE EVENT DATE: 20191025
